FAERS Safety Report 6092271-3 (Version None)
Quarter: 2009Q1

REPORT INFORMATION
  Report Type: 
  Country: None (occurrence: None)
  Receive Date: 20090225
  Receipt Date: 20090216
  Transmission Date: 20090719
  Serious: Yes (Death, Hospitalization)
  Sender: FDA-Public Use
  Company Number: B0551062A

PATIENT
  Age: 49 Year
  Sex: Male
  Weight: 80.9 kg

DRUGS (7)
  1. PAZOPANIB [Suspect]
     Indication: MALIGNANT GLIOMA
     Dosage: 600MG TWICE PER DAY
     Route: 048
     Dates: start: 20081009, end: 20081215
  2. LAPATINIB [Suspect]
     Indication: MALIGNANT GLIOMA
     Dosage: 1000MG TWICE PER DAY
     Route: 048
     Dates: start: 20081009, end: 20081215
  3. PHENYTOIN [Concomitant]
     Dosage: 200MG PER DAY
  4. TEGRETOL [Concomitant]
     Dosage: 300MG TWICE PER DAY
     Route: 048
  5. DEXAMETHASONE [Concomitant]
     Indication: FATIGUE
     Dosage: 2MG PER DAY
     Route: 048
  6. ONDANSETRON [Concomitant]
     Dosage: 8MG TWICE PER DAY
     Route: 048
     Dates: start: 20081106
  7. CODEINE PHOSPHATE [Concomitant]
     Indication: HEADACHE
     Dosage: 30MG FOUR TIMES PER DAY
     Route: 048
     Dates: start: 20081030

REACTIONS (10)
  - CARDIAC ARREST [None]
  - CIRCULATORY COLLAPSE [None]
  - DYSPNOEA [None]
  - FATIGUE [None]
  - HYPOXIA [None]
  - NAUSEA [None]
  - PULMONARY EMBOLISM [None]
  - SINUS TACHYCARDIA [None]
  - SYNCOPE [None]
  - VOMITING [None]
